FAERS Safety Report 13571650 (Version 1)
Quarter: 2017Q2

REPORT INFORMATION
  Report Type: Spontaneous
  Country: US (occurrence: US)
  Receive Date: 20170522
  Receipt Date: 20170522
  Transmission Date: 20170830
  Serious: Yes (Hospitalization)
  Sender: FDA-Public Use
  Company Number: None

PATIENT
  Age: 83 Year
  Sex: Male

DRUGS (7)
  1. TARCEVA [Suspect]
     Active Substance: ERLOTINIB HYDROCHLORIDE
     Indication: LUNG NEOPLASM MALIGNANT
     Dosage: 1 TAB DAILY PO
     Route: 048
     Dates: start: 20140127
  2. VITAMIN C [Concomitant]
     Active Substance: ASCORBIC ACID
  3. BIOTIN [Concomitant]
     Active Substance: BIOTIN
  4. LAMSIL [Concomitant]
  5. CITRACAL [Concomitant]
     Active Substance: CALCIUM CITRATE
  6. VIT K2 [Concomitant]
  7. MIRALAX [Concomitant]
     Active Substance: POLYETHYLENE GLYCOL 3350

REACTIONS (2)
  - Constipation [None]
  - Intestinal obstruction [None]

NARRATIVE: CASE EVENT DATE: 20170308
